FAERS Safety Report 7054213-3 (Version None)
Quarter: 2010Q4

REPORT INFORMATION
  Report Type: 
  Country: None (occurrence: None)
  Receive Date: 20101020
  Receipt Date: 20101007
  Transmission Date: 20110411
  Serious: Yes (Hospitalization)
  Sender: FDA-Public Use
  Company Number: US-ACTELION-A-US2010-39144

PATIENT
  Sex: Female
  Weight: 115 kg

DRUGS (17)
  1. BOSENTAN TABLET 125 MG US [Suspect]
     Indication: PULMONARY ARTERIAL HYPERTENSION
     Dosage: 125 MG, BID
     Route: 048
     Dates: start: 20100221
  2. BOSENTAN TABLET 125 MG US [Suspect]
     Dosage: UNK
     Route: 048
     Dates: start: 20071205
  3. REVATIO [Concomitant]
  4. REMODULIN [Concomitant]
  5. DIGOXIN [Concomitant]
  6. CYMBALTA [Concomitant]
  7. NEXIUM [Concomitant]
  8. FERROUS SULFATE [Concomitant]
  9. LASIX [Concomitant]
  10. NEURONTIN [Concomitant]
  11. ATIVAN [Concomitant]
  12. MAGNESIUM OXIDE [Concomitant]
  13. POTASSIUM CHLORIDE [Concomitant]
  14. SEROQUEL [Concomitant]
  15. SPIRONOLACTONE [Concomitant]
  16. OXYCODONE HCL [Concomitant]
  17. OXYGEN [Concomitant]

REACTIONS (3)
  - HYPOXIA [None]
  - SOMNOLENCE [None]
  - SUPRAVENTRICULAR TACHYCARDIA [None]
